FAERS Safety Report 9017520 (Version 1)
Quarter: 2013Q1

REPORT INFORMATION
  Report Type: Spontaneous
  Country: FR (occurrence: FR)
  Receive Date: 20130117
  Receipt Date: 20130117
  Transmission Date: 20140127
  Serious: Yes (Death, Congenital Anomaly)
  Sender: FDA-Public Use
  Company Number: FR-MYLANLABS-2013S1000890

PATIENT
  Sex: 0

DRUGS (1)
  1. LOSARTAN [Suspect]
     Route: 064

REACTIONS (3)
  - Renal failure chronic [Fatal]
  - Renal aplasia [Fatal]
  - Foetal exposure during pregnancy [Recovered/Resolved]
